APPROVED DRUG PRODUCT: RITODRINE HYDROCHLORIDE
Active Ingredient: RITODRINE HYDROCHLORIDE
Strength: 10MG/ML
Dosage Form/Route: INJECTABLE;INJECTION
Application: A071188 | Product #001
Applicant: ABRAXIS PHARMACEUTICAL PRODUCTS
Approved: Jul 23, 1987 | RLD: No | RS: No | Type: DISCN